FAERS Safety Report 24253765 (Version 3)
Quarter: 2024Q3

REPORT INFORMATION
  Report Type: Spontaneous
  Country: FR (occurrence: FR)
  Receive Date: 20240827
  Receipt Date: 20240913
  Transmission Date: 20241017
  Serious: Yes (Life-Threatening, Disabling, Other)
  Sender: PFIZER
  Company Number: FR-TAKEDA-2016MPI003035

PATIENT
  Age: 44 Year
  Sex: Male

DRUGS (19)
  1. ADCETRIS [Suspect]
     Active Substance: BRENTUXIMAB VEDOTIN
     Indication: Peripheral T-cell lymphoma unspecified stage IV
     Dosage: UNK, CYCLIC (4 CYCLES)
     Route: 042
     Dates: start: 20150416
  2. ADCETRIS [Suspect]
     Active Substance: BRENTUXIMAB VEDOTIN
     Dosage: UNK
     Route: 042
  3. ADCETRIS [Suspect]
     Active Substance: BRENTUXIMAB VEDOTIN
     Dosage: UNK
     Route: 042
  4. ADCETRIS [Suspect]
     Active Substance: BRENTUXIMAB VEDOTIN
     Dosage: UNK
     Route: 042
  5. VINCRISTINE SULFATE [Suspect]
     Active Substance: VINCRISTINE SULFATE
     Indication: Peripheral T-cell lymphoma unspecified stage IV
     Dosage: UNK, CYCLIC (4 CYCLES OF CHOEP)
     Route: 065
  6. CYTARABINE [Suspect]
     Active Substance: CYTARABINE
     Indication: Peripheral T-cell lymphoma unspecified stage IV
     Dosage: UNK, CYCLIC (2 CYCLES OF DHAC)
     Route: 065
  7. CYTARABINE [Suspect]
     Active Substance: CYTARABINE
     Dosage: UNK
  8. CARBOPLATIN [Suspect]
     Active Substance: CARBOPLATIN
     Indication: Peripheral T-cell lymphoma unspecified stage IV
     Dosage: UNK, CYCLIC (2 CYCLES OF DHAC)
     Route: 065
  9. DOXORUBICIN HYDROCHLORIDE [Suspect]
     Active Substance: DOXORUBICIN HYDROCHLORIDE
     Indication: Peripheral T-cell lymphoma unspecified stage IV
     Dosage: UNK, CYCLIC (4 CYCLES OF CHOEP)
     Route: 065
  10. PREDNISONE ACETATE [Suspect]
     Active Substance: PREDNISONE ACETATE
     Indication: Peripheral T-cell lymphoma unspecified stage IV
     Dosage: UNK UNK, CYCLIC (4 CYCLES OF CHOEP)
     Route: 065
  11. PREDNISONE ACETATE [Suspect]
     Active Substance: PREDNISONE ACETATE
     Dosage: UNK UNK, CYCLIC (1 CYCLE OF CEP)
  12. VALGANCICLOVIR HYDROCHLORIDE [Suspect]
     Active Substance: VALGANCICLOVIR HYDROCHLORIDE
     Indication: Antiviral treatment
     Dosage: 1800 MG, QD
     Route: 048
  13. VALGANCICLOVIR HYDROCHLORIDE [Suspect]
     Active Substance: VALGANCICLOVIR HYDROCHLORIDE
     Dosage: 900 MG, QD
     Route: 065
  14. CYCLOPHOSPHAMIDE [Suspect]
     Active Substance: CYCLOPHOSPHAMIDE
     Indication: Peripheral T-cell lymphoma unspecified stage IV
     Dosage: UNK, CYCLIC (4 CYCLES OF CHOEP)
     Route: 065
  15. CYCLOPHOSPHAMIDE [Suspect]
     Active Substance: CYCLOPHOSPHAMIDE
     Indication: T-cell lymphoma stage IV
     Dosage: UNK, CYCLIC (1 CYCLE OF CEP)
  16. ETOPOSIDE PHOSPHATE [Suspect]
     Active Substance: ETOPOSIDE PHOSPHATE
     Indication: Peripheral T-cell lymphoma unspecified stage IV
     Dosage: UNK, CYCLIC (4 CYCLES OF CHOEP PLUS ETOPOSIDE)
     Route: 065
  17. ETOPOSIDE PHOSPHATE [Suspect]
     Active Substance: ETOPOSIDE PHOSPHATE
     Dosage: UNK, CYCLIC (1 CYCLE OF CEP)
  18. DEXAMETHASONE [Suspect]
     Active Substance: DEXAMETHASONE
     Indication: Peripheral T-cell lymphoma unspecified stage IV
     Dosage: UNK, CYCLIC (2 CYCLES OF DHAC)
     Route: 065
  19. BENDAMUSTINE [Suspect]
     Active Substance: BENDAMUSTINE
     Indication: Peripheral T-cell lymphoma unspecified stage IV
     Dosage: UNK, CYCLIC (3 CYCLES)

REACTIONS (16)
  - Cytomegalovirus chorioretinitis [Not Recovered/Not Resolved]
  - Blindness [Not Recovered/Not Resolved]
  - Cytomegalovirus infection reactivation [Recovering/Resolving]
  - Cytomegalovirus infection [Unknown]
  - Hepatitis viral [Unknown]
  - Malignant neoplasm progression [Unknown]
  - Gamma-glutamyltransferase increased [Unknown]
  - Pneumonia [Unknown]
  - Dyspnoea [Unknown]
  - T-cell lymphoma stage IV [Unknown]
  - Septic shock [Unknown]
  - Alanine aminotransferase increased [Unknown]
  - Pyrexia [Unknown]
  - Nephropathy toxic [Unknown]
  - Drug ineffective [Unknown]
  - Off label use [Unknown]

NARRATIVE: CASE EVENT DATE: 20150707
